FAERS Safety Report 8947774 (Version 1)
Quarter: 2012Q4

REPORT INFORMATION
  Report Type: 
  Country: US (occurrence: US)
  Receive Date: 20121204
  Receipt Date: 20121204
  Transmission Date: 20130627
  Serious: Yes (Other)
  Sender: FDA-Public Use
  Company Number: US-BAYER-2012-126497

PATIENT
  Age: 43 Year
  Sex: Female

DRUGS (2)
  1. ACARBOSE [Suspect]
     Indication: DIABETES
  2. EXCEDRIN [Suspect]
     Indication: HEADACHE
     Dosage: 1 mg, QID

REACTIONS (5)
  - Hepatic failure [Recovering/Resolving]
  - Headache [None]
  - Hepatic necrosis [None]
  - Hepatotoxicity [None]
  - Drug-induced liver injury [None]
